FAERS Safety Report 7732891-0 (Version None)
Quarter: 2011Q3

REPORT INFORMATION
  Report Type: 
  Country: None (occurrence: None)
  Receive Date: 20110907
  Receipt Date: 20110824
  Transmission Date: 20111222
  Serious: Yes (Other)
  Sender: FDA-Public Use
  Company Number: US-JNJFOC-20110609810

PATIENT
  Sex: Female
  Weight: 47.17 kg

DRUGS (6)
  1. ESTRADIOL [Concomitant]
     Indication: HORMONE REPLACEMENT THERAPY
     Route: 048
  2. FOSAMAX [Concomitant]
     Indication: BONE DISORDER
     Route: 065
  3. ELMIRON [Suspect]
     Indication: CYSTITIS INTERSTITIAL
     Route: 048
     Dates: start: 19980101
  4. MEDROXYPROGESTERONE [Concomitant]
     Indication: HORMONE REPLACEMENT THERAPY
     Route: 048
  5. SIMVASTATIN [Concomitant]
     Indication: BLOOD CHOLESTEROL INCREASED
     Route: 048
  6. BENTYL [Concomitant]
     Indication: COLITIS ULCERATIVE
     Dosage: AS NEEDED
     Route: 048
     Dates: start: 20100101

REACTIONS (9)
  - PLATELET COUNT INCREASED [None]
  - HEADACHE [None]
  - DRUG DOSE OMISSION [None]
  - ESSENTIAL THROMBOCYTHAEMIA [None]
  - COLITIS ULCERATIVE [None]
  - DIZZINESS [None]
  - MITRAL VALVE INCOMPETENCE [None]
  - ANAEMIA [None]
  - OEDEMA PERIPHERAL [None]
